FAERS Safety Report 7542010-1 (Version None)
Quarter: 2011Q2

REPORT INFORMATION
  Report Type: 
  Country: None (occurrence: None)
  Receive Date: 20110606
  Receipt Date: 20110527
  Transmission Date: 20111010
  Serious: Yes (Other)
  Sender: FDA-Public Use
  Company Number: GB-ACCORD-004221

PATIENT
  Age: 40 Year
  Sex: Male

DRUGS (2)
  1. FINASTERIDE [Suspect]
     Indication: ALOPECIA
     Dosage: 1.00-MG-2.00 TIMES/ PER-1.0DAYS
     Dates: start: 20060101, end: 20080101
  2. AVODART [Suspect]
     Indication: ALOPECIA
     Dosage: 500.00-NG-1.00TIMES PER-1.0DAYS/ORAL
     Route: 048
     Dates: start: 20080101, end: 20090101

REACTIONS (6)
  - DYSGEUSIA [None]
  - INTENTIONAL DRUG MISUSE [None]
  - WRONG TECHNIQUE IN DRUG USAGE PROCESS [None]
  - OVERDOSE [None]
  - DARK CIRCLES UNDER EYES [None]
  - SKIN ATROPHY [None]
